FAERS Safety Report 16179849 (Version 1)
Quarter: 2019Q2

REPORT INFORMATION
  Report Type: Spontaneous
  Country: FR (occurrence: FR)
  Receive Date: 20190410
  Receipt Date: 20190410
  Transmission Date: 20190711
  Serious: Yes (Hospitalization, Other)
  Sender: FDA-Public Use
  Company Number: FR-PFIZER INC-2019142023

PATIENT
  Age: 19 Year
  Sex: Female

DRUGS (2)
  1. JASMINE [DROSPIRENONE;ETHINYLESTRADIOL] [Suspect]
     Active Substance: DROSPIRENONE\ETHINYL ESTRADIOL
     Indication: ORAL CONTRACEPTION
     Dosage: 1 DF, 1X/DAY
     Route: 048
  2. IBUPROFEN. [Suspect]
     Active Substance: IBUPROFEN
     Indication: VIRAL INFECTION
     Dosage: UNK

REACTIONS (7)
  - Eosinophilia [Recovering/Resolving]
  - Neutropenia [Recovering/Resolving]
  - Asthenia [Unknown]
  - Pyrexia [Unknown]
  - Viral infection [Unknown]
  - Myalgia [Unknown]
  - Thrombocytosis [Recovering/Resolving]

NARRATIVE: CASE EVENT DATE: 20050602
